FAERS Safety Report 23126890 (Version 3)
Quarter: 2024Q1

REPORT INFORMATION
  Report Type: Spontaneous
  Country: DE (occurrence: DE)
  Receive Date: 20231030
  Receipt Date: 20240212
  Transmission Date: 20240410
  Serious: Yes (Hospitalization, Other)
  Sender: FDA-Public Use
  Company Number: DE-SAMSUNG BIOEPIS-SB-2023-16817

PATIENT
  Age: 60 Year
  Sex: Male
  Weight: 67.4 kg

DRUGS (6)
  1. DOCETAXEL [Suspect]
     Active Substance: DOCETAXEL\DOCETAXEL ANHYDROUS
     Indication: Product used for unknown indication
     Dosage: 87 MG
     Route: 042
     Dates: start: 20230425, end: 20230607
  2. FLUOROURACIL [Suspect]
     Active Substance: FLUOROURACIL
     Indication: Product used for unknown indication
     Dosage: 4498 MG
     Route: 042
     Dates: start: 20230425, end: 20230607
  3. LEUCOVORIN [Suspect]
     Active Substance: LEUCOVORIN\LEUCOVORIN CALCIUM
     Indication: Product used for unknown indication
     Dosage: 346 MG
     Route: 042
     Dates: start: 20230425, end: 20230607
  4. OXALIPLATIN [Suspect]
     Active Substance: OXALIPLATIN
     Indication: Product used for unknown indication
     Dosage: 110 MG
     Route: 042
     Dates: start: 20230425, end: 20230607
  5. ONTRUZANT [Suspect]
     Active Substance: TRASTUZUMAB-DTTB
     Indication: Product used for unknown indication
     Dosage: 404 MG
     Route: 042
     Dates: start: 20230425, end: 20230607
  6. PEMBROLIZUMAB [Suspect]
     Active Substance: PEMBROLIZUMAB
     Indication: Product used for unknown indication
     Dosage: 200 MG
     Route: 042
     Dates: start: 20230425, end: 20230607

REACTIONS (5)
  - C-reactive protein increased [Recovered/Resolved]
  - Cholecystitis [Recovered/Resolved]
  - Pyrexia [Unknown]
  - Diarrhoea [Unknown]
  - Product use in unapproved indication [Unknown]

NARRATIVE: CASE EVENT DATE: 20230608
